FAERS Safety Report 23485828 (Version 3)
Quarter: 2024Q1

REPORT INFORMATION
  Report Type: Spontaneous
  Country: US (occurrence: US)
  Receive Date: 20240206
  Receipt Date: 20240214
  Transmission Date: 20240410
  Serious: No
  Sender: FDA-Public Use
  Company Number: US-ABBVIE-5624135

PATIENT
  Sex: Female
  Weight: 57 kg

DRUGS (4)
  1. BOTOX [Suspect]
     Active Substance: ONABOTULINUMTOXINA
     Indication: Skin cosmetic procedure
     Dosage: TIME INTERVAL: AS NECESSARY: FORM STRENGTH: 100 UNIT, FREQUENCY TEXT: 3-4 MONTHS, TOTAL DOSE- 52 ...
     Route: 030
  2. BOTOX [Suspect]
     Active Substance: ONABOTULINUMTOXINA
     Indication: Skin cosmetic procedure
     Dosage: TIME INTERVAL: AS NECESSARY: FORM STRENGTH: 100 UNIT, FREQUENCY TEXT: 3-4 MONTHS, TOTAL DOSE- 52 ...
     Route: 030
  3. BOTOX [Suspect]
     Active Substance: ONABOTULINUMTOXINA
     Indication: Skin cosmetic procedure
     Dosage: TIME INTERVAL: AS NECESSARY: FORM STRENGTH: 100 UNIT, FREQUENCY TEXT: 3-4 MONTHS, TOTAL DOSE- 52 ...
     Route: 030
  4. BOTOX [Suspect]
     Active Substance: ONABOTULINUMTOXINA
     Indication: Skin cosmetic procedure
     Dosage: TIME INTERVAL: AS NECESSARY: FORM STRENGTH: 100 UNIT, FREQUENCY TEXT: 3-4 MONTHS
     Route: 065
     Dates: start: 2014, end: 2014

REACTIONS (3)
  - Injection site swelling [Recovering/Resolving]
  - Injection site urticaria [Not Recovered/Not Resolved]
  - Injection site papule [Not Recovered/Not Resolved]

NARRATIVE: CASE EVENT DATE: 20240101
